FAERS Safety Report 15266052 (Version 1)
Quarter: 2018Q3

REPORT INFORMATION
  Report Type: Spontaneous
  Country: US (occurrence: US)
  Receive Date: 20180810
  Receipt Date: 20180810
  Transmission Date: 20181010
  Serious: No
  Sender: FDA-Public Use
  Company Number: US-TEVA-2018-US-939019

PATIENT
  Age: 50 Year
  Sex: Female

DRUGS (5)
  1. DESVENLAFAXINE SODIUM [Suspect]
     Active Substance: DESVENLAFAXINE
     Route: 065
  2. DESVENLAFAXINE SODIUM [Suspect]
     Active Substance: DESVENLAFAXINE
     Indication: ANXIETY
     Route: 065
  3. DESVENLAFAXINE SODIUM [Suspect]
     Active Substance: DESVENLAFAXINE
     Route: 065
  4. DESVENLAFAXINE SODIUM [Suspect]
     Active Substance: DESVENLAFAXINE
     Dosage: QUARTER OF 25MG DOSE
     Route: 065
  5. DESVENLAFAXINE SODIUM [Suspect]
     Active Substance: DESVENLAFAXINE
     Dosage: HALF OF A 25MG
     Route: 065

REACTIONS (7)
  - Diarrhoea [Unknown]
  - Fatigue [Unknown]
  - Disturbance in attention [Unknown]
  - Wrong technique in product usage process [Not Recovered/Not Resolved]
  - Abdominal discomfort [Unknown]
  - Insomnia [Unknown]
  - Dizziness [Recovering/Resolving]

NARRATIVE: CASE EVENT DATE: 20180709
